FAERS Safety Report 6663491-1 (Version None)
Quarter: 2010Q2

REPORT INFORMATION
  Report Type: 
  Country: None (occurrence: None)
  Receive Date: 20100401
  Receipt Date: 20100323
  Transmission Date: 20101027
  Serious: Yes (Hospitalization)
  Sender: FDA-Public Use
  Company Number: JP-PFIZER INC-2010012594

PATIENT
  Age: 62 Year
  Sex: Female
  Weight: 32.5 kg

DRUGS (15)
  1. VFEND [Suspect]
     Indication: ASPERGILLOMA
     Dosage: 150 MG, 2X/DAY
     Route: 048
     Dates: start: 20100108
  2. VFEND [Suspect]
     Dosage: 100 MG, 2X/DAY
     Route: 048
     Dates: start: 20100109, end: 20100120
  3. ZOSYN [Concomitant]
     Dosage: UNK
     Route: 042
     Dates: start: 20100106, end: 20100119
  4. FERRO-GRADUMET [Concomitant]
     Route: 048
  5. MEDICON [Concomitant]
     Dosage: UNK
     Route: 048
     Dates: end: 20100104
  6. AMICALIQ [Concomitant]
     Route: 042
     Dates: start: 20100108, end: 20100119
  7. DIGOXIN [Concomitant]
     Dosage: UNK
     Route: 048
  8. PYRIDOXAL [Concomitant]
     Route: 048
     Dates: end: 20100104
  9. SAWACILLIN [Concomitant]
     Dosage: UNK
     Route: 048
     Dates: start: 20091218, end: 20100104
  10. CALONAL [Concomitant]
     Route: 048
     Dates: end: 20100104
  11. ERYTHROCIN LACTOBIONATE [Concomitant]
     Dosage: UNK
     Route: 048
     Dates: start: 20091120, end: 20100104
  12. MUCOSOLVAN [Concomitant]
     Route: 048
     Dates: end: 20100104
  13. DASEN [Concomitant]
     Route: 048
     Dates: end: 20100104
  14. LAC B [Concomitant]
     Route: 048
     Dates: end: 20100104
  15. PENTCILLIN [Concomitant]
     Dosage: UNK
     Route: 042
     Dates: start: 20100105, end: 20100105

REACTIONS (2)
  - INAPPROPRIATE ANTIDIURETIC HORMONE SECRETION [None]
  - PHOTOPHOBIA [None]
